FAERS Safety Report 6813119-2 (Version None)
Quarter: 2010Q3

REPORT INFORMATION
  Report Type: 
  Country: None (occurrence: None)
  Receive Date: 20100701
  Receipt Date: 20100624
  Transmission Date: 20110219
  Serious: Yes (Hospitalization, Other)
  Sender: FDA-Public Use
  Company Number: GB-PFIZER INC-2010078886

PATIENT
  Age: 16 Year
  Sex: Male
  Weight: 60 kg

DRUGS (4)
  1. SOLU-MEDRONE [Suspect]
     Indication: CROHN'S DISEASE
     Dosage: 860 MG, 1X/DAY
  2. PREDNISOLONE [Suspect]
     Dosage: UNK
     Route: 048
  3. AZATHIOPRINE [Concomitant]
     Dosage: UNK
  4. ADALIMUMAB [Concomitant]

REACTIONS (4)
  - DRUG INEFFECTIVE [None]
  - FATIGUE [None]
  - HYPERSOMNIA [None]
  - IMMUNOSUPPRESSION [None]
